FAERS Safety Report 18295613 (Version 1)
Quarter: 2020Q3

REPORT INFORMATION
  Report Type: Spontaneous
  Country: US (occurrence: US)
  Receive Date: 20200922
  Receipt Date: 20200922
  Transmission Date: 20201103
  Serious: No
  Sender: FDA-Public Use
  Company Number: US-B.I. PHARMACEUTICALS,INC./RIDGEFIELD-2020-BI-047082

PATIENT
  Sex: Female
  Weight: 54.43 kg

DRUGS (2)
  1. LYRICA [Suspect]
     Active Substance: PREGABALIN
     Indication: FIBROMYALGIA
     Dosage: 50MG CAPSULES BY MOUTH TWICE DAILY
     Route: 048
  2. MELOXICAM. [Suspect]
     Active Substance: MELOXICAM
     Indication: FIBROMYALGIA
     Dosage: 40MG CAPSULES BY MOUTH ONCE DAILY
     Route: 048

REACTIONS (2)
  - Malaise [Unknown]
  - Pain [Unknown]
